FAERS Safety Report 20873731 (Version 6)
Quarter: 2022Q3

REPORT INFORMATION
  Report Type: Spontaneous
  Country: US (occurrence: None)
  Receive Date: 20220525
  Receipt Date: 20220704
  Transmission Date: 20221026
  Serious: Yes (Hospitalization, Other)
  Sender: FDA-Public Use
  Company Number: 2022A189699

PATIENT
  Age: 27308 Day
  Sex: Male
  Weight: 106.8 kg

DRUGS (1)
  1. LUMOXITI [Suspect]
     Active Substance: MOXETUMOMAB PASUDOTOX-TDFK
     Indication: Hairy cell leukaemia
     Dosage: 0.04MG/KG AS REQUIRED
     Route: 042
     Dates: start: 20220510, end: 20220513

REACTIONS (2)
  - Haemolytic uraemic syndrome [Recovered/Resolved]
  - Capillary leak syndrome [Recovered/Resolved]

NARRATIVE: CASE EVENT DATE: 20220516
